FAERS Safety Report 6003597-3 (Version None)
Quarter: 2008Q4

REPORT INFORMATION
  Report Type: 
  Country: None (occurrence: None)
  Receive Date: 20081212
  Receipt Date: 20081212
  Transmission Date: 20090506
  Serious: Yes (Hospitalization)
  Sender: FDA-Public Use
  Company Number: None

PATIENT
  Sex: Male

DRUGS (1)
  1. TASIGNA [Suspect]
     Indication: CHRONIC MYELOID LEUKAEMIA
     Dosage: 400MG DAILY FOR 21 DAYS PO
     Route: 048
     Dates: start: 20081118, end: 20081208

REACTIONS (3)
  - EPISTAXIS [None]
  - EYE HAEMORRHAGE [None]
  - MOUTH HAEMORRHAGE [None]
